FAERS Safety Report 24463522 (Version 1)
Quarter: 2024Q4

REPORT INFORMATION
  Report Type: Report from Study
  Country: US (occurrence: US)
  Receive Date: 20241018
  Receipt Date: 20241018
  Transmission Date: 20250115
  Serious: No
  Sender: ROCHE
  Company Number: US-ROCHE-3276494

PATIENT
  Age: 73 Year
  Sex: Female
  Weight: 56.7 kg

DRUGS (19)
  1. XOLAIR [Suspect]
     Active Substance: OMALIZUMAB
     Indication: Urticaria
     Route: 065
  2. MONTELUKAST [Concomitant]
     Active Substance: MONTELUKAST
  3. LEVOCETIRIZINE [Concomitant]
     Active Substance: LEVOCETIRIZINE
     Dates: start: 20230215
  4. HYDROXYZINE HYDROCHLORIDE [Concomitant]
     Active Substance: HYDROXYZINE HYDROCHLORIDE
     Dates: start: 20230221
  5. METOPROLOL SUCCINATE [Concomitant]
     Active Substance: METOPROLOL SUCCINATE
     Dates: start: 20240111
  6. MONTELUKAST [Concomitant]
     Active Substance: MONTELUKAST
     Dates: start: 20220920
  7. TRIAMCINOLONE ACETONIDE [Concomitant]
     Active Substance: TRIAMCINOLONE ACETONIDE
     Dates: start: 20230413
  8. PROMETHAZINE DM [Concomitant]
     Active Substance: DEXTROMETHORPHAN HYDROBROMIDE\PROMETHAZINE HYDROCHLORIDE
     Dates: start: 20240227
  9. PREDNISONE [Concomitant]
     Active Substance: PREDNISONE
     Dates: start: 20231216
  10. MEDROL [Concomitant]
     Active Substance: METHYLPREDNISOLONE
     Dates: start: 20240227
  11. FLUTICASONE PROPIONATE [Concomitant]
     Active Substance: FLUTICASONE PROPIONATE
     Dates: start: 20240312
  12. EPINEPHRINE [Concomitant]
     Active Substance: EPINEPHRINE
  13. DOXYCYCLINE [Concomitant]
     Active Substance: DOXYCYCLINE
  14. DICLOFENAC SODIUM [Concomitant]
     Active Substance: DICLOFENAC SODIUM
     Dates: start: 20230622
  15. BUDESONIDE [Concomitant]
     Active Substance: BUDESONIDE
     Dates: start: 20240321
  16. BIOTENE DRY MOUTH WASH [Concomitant]
     Dates: start: 20240321
  17. BENZONATATE [Concomitant]
     Active Substance: BENZONATATE
     Dates: start: 20240227
  18. ALBUTEROL SULFATE [Concomitant]
     Active Substance: ALBUTEROL SULFATE
     Dates: start: 20230812
  19. ALBUTEROL SULFATE [Concomitant]
     Active Substance: ALBUTEROL SULFATE
     Dates: start: 20240227

REACTIONS (17)
  - Rhinorrhoea [Unknown]
  - Swelling [Unknown]
  - Dyspnoea [Unknown]
  - Eye pruritus [Unknown]
  - Laryngeal oedema [Unknown]
  - Conjunctivitis allergic [Unknown]
  - Dry mouth [Unknown]
  - Vitamin D deficiency [Unknown]
  - Rhinitis allergic [Unknown]
  - Dry throat [Unknown]
  - Dysphagia [Unknown]
  - Nasal congestion [Unknown]
  - Sinus pain [Unknown]
  - Paranasal sinus discomfort [Unknown]
  - Tongue dry [Unknown]
  - Dysphonia [Unknown]
  - Eye disorder [Unknown]
